FAERS Safety Report 11093889 (Version 1)
Quarter: 2015Q2

REPORT INFORMATION
  Report Type: Spontaneous
  Country: GB (occurrence: GB)
  Receive Date: 20150506
  Receipt Date: 20150506
  Transmission Date: 20150821
  Serious: Yes (Other)
  Sender: FDA-Public Use
  Company Number: GB-GILEAD-2015-0152148

PATIENT
  Age: 71 Year
  Sex: Male

DRUGS (19)
  1. LANSOPRAZOLE. [Concomitant]
     Active Substance: LANSOPRAZOLE
     Dosage: 1 DF, QD
     Dates: start: 20141029
  2. CLOPIDOGREL [Concomitant]
     Active Substance: CLOPIDOGREL BISULFATE
     Dosage: 1 DF, QD
     Dates: start: 20150318
  3. AMLODIPINE [Concomitant]
     Active Substance: AMLODIPINE BESYLATE
     Dosage: 1 DF, QD
     Dates: start: 20141029
  4. ASPIRIN                            /00002701/ [Concomitant]
     Active Substance: ASPIRIN
     Dosage: 1 DF, QD
     Dates: start: 20141029
  5. ISOTARD XL [Concomitant]
     Dosage: 2 DF, QD
     Dates: start: 20141029
  6. PIROXICAM. [Concomitant]
     Active Substance: PIROXICAM
     Dosage: 1 DF, TID
  7. BECLOMETASONE [Concomitant]
     Active Substance: BECLOMETHASONE DIPROPIONATE
     Dosage: 4 DF, BID
     Dates: start: 20150318, end: 20150412
  8. DOXYCYCLINE. [Concomitant]
     Active Substance: DOXYCYCLINE
     Dosage: 1 DF, BID
     Dates: start: 20150130, end: 20150213
  9. GLYCERYL TRINITRATE [Concomitant]
     Active Substance: NITROGLYCERIN
     Dosage: 1 DF, QD
     Dates: start: 20141029
  10. NOVORAPID [Concomitant]
     Active Substance: INSULIN ASPART
     Dosage: UNK
     Dates: start: 20141029
  11. BISOPROLOL [Concomitant]
     Active Substance: BISOPROLOL
     Dosage: 1 DF, QD
     Dates: start: 20141029
  12. GLICLAZIDE [Concomitant]
     Active Substance: GLICLAZIDE
     Dosage: 2 DF, BID
     Dates: start: 20141029
  13. IRBESARTAN. [Concomitant]
     Active Substance: IRBESARTAN
     Dosage: 1 DF, QD
     Dates: start: 20141029
  14. QUININE [Concomitant]
     Active Substance: QUININE
     Dosage: 1 DF, QD
     Dates: start: 20141029
  15. SIMVASTIN [Concomitant]
     Active Substance: SIMVASTATIN
     Dosage: 1 DF, QD
  16. TRAMADOL [Concomitant]
     Active Substance: TRAMADOL
     Dosage: 1 DF, QD
  17. RANOLAZINE [Suspect]
     Active Substance: RANOLAZINE
     Indication: PRODUCT USED FOR UNKNOWN INDICATION
     Dosage: UNK
     Route: 048
     Dates: start: 20150318, end: 20150411
  18. BUMETANIDE. [Concomitant]
     Active Substance: BUMETANIDE
     Dosage: 2 DF, QD
     Dates: start: 20141029
  19. PARACETAMOL [Concomitant]
     Active Substance: ACETAMINOPHEN
     Dosage: 2 DF, QD
     Dates: start: 20141029

REACTIONS (5)
  - Erythema [Recovering/Resolving]
  - Skin exfoliation [Recovering/Resolving]
  - Skin reaction [Recovering/Resolving]
  - Rash macular [Recovering/Resolving]
  - Pruritus [Recovering/Resolving]

NARRATIVE: CASE EVENT DATE: 20150318
